FAERS Safety Report 20598397 (Version 4)
Quarter: 2023Q1

REPORT INFORMATION
  Report Type: Report from Study
  Country: JP (occurrence: JP)
  Receive Date: 20220315
  Receipt Date: 20230221
  Transmission Date: 20230417
  Serious: Yes (Hospitalization)
  Sender: FDA-Public Use
  Company Number: JP-BMKK-BMS-2022-031612AA

PATIENT
  Age: 8 Decade
  Sex: Male
  Weight: 50.4 kg

DRUGS (12)
  1. OPDIVO [Suspect]
     Active Substance: NIVOLUMAB
     Indication: Non-small cell lung cancer recurrent
     Dosage: UNK
     Route: 041
     Dates: start: 20210528, end: 20210824
  2. OPDIVO [Suspect]
     Active Substance: NIVOLUMAB
     Route: 041
     Dates: start: 20211207
  3. OPDIVO [Suspect]
     Active Substance: NIVOLUMAB
  4. YERVOY [Suspect]
     Active Substance: IPILIMUMAB
     Indication: Non-small cell lung cancer recurrent
     Dosage: UNK
     Route: 041
     Dates: start: 20210528, end: 20210824
  5. YERVOY [Suspect]
     Active Substance: IPILIMUMAB
     Route: 041
     Dates: start: 20211116
  6. YERVOY [Suspect]
     Active Substance: IPILIMUMAB
  7. CARBOPLATIN [Concomitant]
     Active Substance: CARBOPLATIN
     Indication: Non-small cell lung cancer recurrent
     Dosage: UNK
     Dates: start: 20210528, end: 20210622
  8. CARBOPLATIN [Concomitant]
     Active Substance: CARBOPLATIN
  9. CARBOPLATIN [Concomitant]
     Active Substance: CARBOPLATIN
  10. PACLITAXEL [Concomitant]
     Active Substance: PACLITAXEL
     Indication: Non-small cell lung cancer recurrent
     Dosage: UNK
     Dates: start: 20210528, end: 20210622
  11. PACLITAXEL [Concomitant]
     Active Substance: PACLITAXEL
  12. PACLITAXEL [Concomitant]
     Active Substance: PACLITAXEL

REACTIONS (3)
  - Adrenocorticotropic hormone deficiency [Recovering/Resolving]
  - Adrenal disorder [Recovering/Resolving]
  - Malaise [Recovered/Resolved]

NARRATIVE: CASE EVENT DATE: 20210916
